FAERS Safety Report 4317641-2 (Version None)
Quarter: 2004Q1

REPORT INFORMATION
  Report Type: 
  Country: None (occurrence: None)
  Receive Date: 20040315
  Receipt Date: 20030827
  Transmission Date: 20041129
  Serious: Yes (Hospitalization)
  Sender: FDA-Public Use
  Company Number: FR-GLAXOSMITHKLINE-B0308393A

PATIENT
  Age: 91 Year
  Sex: Male

DRUGS (1)
  1. DEROXAT [Suspect]
     Route: 048
     Dates: start: 20020101

REACTIONS (2)
  - PRURITUS [None]
  - T-CELL LYMPHOMA [None]
